FAERS Safety Report 8112466-4 (Version None)
Quarter: 2012Q1

REPORT INFORMATION
  Report Type: 
  Country: None (occurrence: None)
  Receive Date: 20120203
  Receipt Date: 20120201
  Transmission Date: 20120608
  Serious: No
  Sender: FDA-Public Use
  Company Number: US-PFIZER INC-2012028328

PATIENT
  Sex: Female

DRUGS (2)
  1. IBUPROFEN (ADVIL) [Suspect]
     Indication: HEADACHE
     Dosage: UNK, 1X/DAY
     Route: 048
     Dates: start: 20111201, end: 20120115
  2. IBUPROFEN (ADVIL) [Suspect]
     Indication: ABDOMINAL PAIN UPPER

REACTIONS (2)
  - ADVERSE REACTION [None]
  - FEELING ABNORMAL [None]
